FAERS Safety Report 5214467-2 (Version None)
Quarter: 2007Q1

REPORT INFORMATION
  Report Type: 
  Country: None (occurrence: None)
  Receive Date: 20061107
  Receipt Date: 20060726
  Transmission Date: 20070707
  Serious: No
  Sender: FDA-Public Use
  Company Number: 200614783BWH

PATIENT
  Age: 59 Year
  Sex: Male

DRUGS (5)
  1. LEVITRA [Suspect]
     Indication: ERECTILE DYSFUNCTION
     Dosage: 10 MG ONCE, ORAL
     Route: 048
     Dates: start: 20060701
  2. ATENOLOL [Concomitant]
  3. NORVASC [Concomitant]
  4. LOVASTATIN [Concomitant]
  5. ALLOPURINOL [Concomitant]

REACTIONS (2)
  - ERECTILE DYSFUNCTION [None]
  - THERAPEUTIC RESPONSE DELAYED [None]
